FAERS Safety Report 4695485-X (Version None)
Quarter: 2005Q2

REPORT INFORMATION
  Report Type: 
  Country: None (occurrence: None)
  Receive Date: 20050608
  Receipt Date: 20050505
  Transmission Date: 20051028
  Serious: No
  Sender: FDA-Public Use
  Company Number: A03200501354

PATIENT
  Sex: Female

DRUGS (1)
  1. ELOXATIN [Suspect]
     Dosage: RESPIRATORY (INHALATION)
     Route: 055

REACTIONS (2)
  - DYSPNOEA [None]
  - OCCUPATIONAL EXPOSURE TO TOXIC AGENT [None]
